FAERS Safety Report 7243439-1 (Version None)
Quarter: 2011Q1

REPORT INFORMATION
  Report Type: 
  Country: None (occurrence: None)
  Receive Date: 20110125
  Receipt Date: 20110119
  Transmission Date: 20110831
  Serious: Yes (Hospitalization)
  Sender: FDA-Public Use
  Company Number: GB-ABBOTT-11P-167-0699711-00

PATIENT
  Age: 20 Year
  Sex: Male

DRUGS (3)
  1. VALPROATE SODIUM [Suspect]
     Indication: AFFECTIVE DISORDER
     Route: 065
     Dates: start: 20100101
  2. RISPERIDONE [Suspect]
     Indication: SCHIZOPHRENIA
     Route: 030
     Dates: start: 20100903, end: 20101204
  3. CLOZAPINE [Suspect]
     Indication: SCHIZOPHRENIA
     Route: 065
     Dates: start: 20101221, end: 20101229

REACTIONS (5)
  - TACHYCARDIA [None]
  - INCORRECT DOSE ADMINISTERED [None]
  - ELECTROCARDIOGRAM T WAVE INVERSION [None]
  - WHITE BLOOD CELL COUNT DECREASED [None]
  - ELECTROCARDIOGRAM ST SEGMENT ELEVATION [None]
